FAERS Safety Report 16384336 (Version 1)
Quarter: 2019Q2

REPORT INFORMATION
  Report Type: Spontaneous
  Country: FR (occurrence: FR)
  Receive Date: 20190603
  Receipt Date: 20190603
  Transmission Date: 20190711
  Serious: Yes (Hospitalization)
  Sender: FDA-Public Use
  Company Number: FR-TEVA-2019-FR-1057294

PATIENT
  Age: 12 Year
  Sex: Female
  Weight: 74 kg

DRUGS (3)
  1. CHLORHYDRATE DE TRAMADOL [Suspect]
     Active Substance: TRAMADOL HYDROCHLORIDE
     Indication: POISONING DELIBERATE
     Route: 048
     Dates: start: 20190314
  2. PARACETAMOL [Suspect]
     Active Substance: ACETAMINOPHEN
     Indication: POISONING DELIBERATE
     Route: 048
     Dates: start: 20190314
  3. STRESAM [Suspect]
     Active Substance: ETIFOXINE
     Indication: POISONING DELIBERATE
     Route: 048
     Dates: start: 20190314

REACTIONS (2)
  - Somnolence [Recovered/Resolved]
  - Hypoglycaemia [Recovered/Resolved]

NARRATIVE: CASE EVENT DATE: 20190314
